FAERS Safety Report 15309539 (Version 1)
Quarter: 2018Q4

REPORT INFORMATION
  Report Type: Spontaneous
  Country: BE (occurrence: BE)
  Receive Date: 20180823
  Receipt Date: 20180823
  Transmission Date: 20190204
  Serious: Yes (Other)
  Sender: FDA-Public Use
  Company Number: BE-TEVA-2018-BE-947073

PATIENT
  Sex: Female

DRUGS (2)
  1. IBUPROFEN. [Suspect]
     Active Substance: IBUPROFEN
     Route: 048
  2. AMOXICLAV MYLAN 875 MG - 125 MG COMPRIM?S PELLICUL?S [Suspect]
     Active Substance: AMOXICILLIN\CLAVULANATE POTASSIUM
     Dosage: 875 MG  -125 MG
     Route: 048

REACTIONS (5)
  - Headache [Unknown]
  - Pharyngeal oedema [Unknown]
  - Vasodilatation [Unknown]
  - Stridor [Unknown]
  - Urticaria [Unknown]
